FAERS Safety Report 9275717 (Version 1)
Quarter: 2013Q2

REPORT INFORMATION
  Report Type: Report from Study
  Country: US (occurrence: US)
  Receive Date: 20130507
  Receipt Date: 20130507
  Transmission Date: 20140414
  Serious: Yes (Hospitalization, Other)
  Sender: FDA-Public Use
  Company Number: US-ROCHE-1219789

PATIENT
  Age: 75 Year
  Sex: Female
  Weight: 64.01 kg

DRUGS (7)
  1. ACTEMRA [Suspect]
     Indication: RHEUMATOID ARTHRITIS
     Route: 042
     Dates: start: 201205
  2. ACTEMRA [Suspect]
     Route: 042
     Dates: start: 20130212, end: 20130212
  3. HUMIRA [Suspect]
     Indication: RHEUMATOID ARTHRITIS
     Route: 058
     Dates: start: 201201, end: 201201
  4. NEXIUM [Concomitant]
  5. ZYRTEC [Concomitant]
     Indication: HYPERSENSITIVITY
  6. BENICAR [Concomitant]
     Indication: HYPERTENSION
  7. VITAMIN B12 [Concomitant]

REACTIONS (8)
  - White blood cell count decreased [Recovered/Resolved]
  - Platelet count decreased [Recovered/Resolved]
  - Skin haemorrhage [Recovered/Resolved]
  - Rash [Recovered/Resolved]
  - Pruritus [Recovered/Resolved]
  - Eye pruritus [Unknown]
  - Infection [Unknown]
  - Skin exfoliation [Unknown]
